FAERS Safety Report 9369305 (Version 1)
Quarter: 2013Q2

REPORT INFORMATION
  Report Type: Spontaneous
  Country: US (occurrence: US)
  Receive Date: 20130626
  Receipt Date: 20130626
  Transmission Date: 20140414
  Serious: No
  Sender: FDA-Public Use
  Company Number: PHEH2013US013627

PATIENT
  Sex: 0

DRUGS (5)
  1. GLEEVEC [Suspect]
     Dosage: UNK UKN, UNK
     Route: 048
  2. TASIGNA [Suspect]
     Dosage: UNK UKN, UNK
  3. BOSUTINIB [Suspect]
     Indication: CHRONIC MYELOID LEUKAEMIA
     Dosage: 400 MG, DAILY
     Route: 048
  4. BOSUTINIB [Suspect]
     Dosage: UNK UKN, UNK
  5. DASATINIB [Suspect]
     Dosage: UNK UKN, UNK

REACTIONS (1)
  - Rash [Recovering/Resolving]
